FAERS Safety Report 9288446 (Version 1)
Quarter: 2013Q2

REPORT INFORMATION
  Report Type: Spontaneous
  Country: TR (occurrence: TR)
  Receive Date: 20130514
  Receipt Date: 20130514
  Transmission Date: 20140414
  Serious: Yes (Other)
  Sender: FDA-Public Use
  Company Number: TR-PFIZER INC-2013146317

PATIENT
  Age: 73 Year
  Sex: Female

DRUGS (2)
  1. PREGABALIN [Suspect]
     Indication: NEURALGIA
     Dosage: 150MG/DAY
  2. TRAMADOL [Concomitant]
     Indication: NEURALGIA
     Dosage: 50MG/DAY

REACTIONS (1)
  - Status epilepticus [Recovered/Resolved]
